FAERS Safety Report 10019451 (Version 2)
Quarter: 2014Q2

REPORT INFORMATION
  Report Type: Spontaneous
  Country: US (occurrence: US)
  Receive Date: 20140318
  Receipt Date: 20140506
  Transmission Date: 20141212
  Serious: No
  Sender: FDA-Public Use
  Company Number: US-TEVA-469313USA

PATIENT
  Age: 21 Year
  Sex: Female
  Weight: 50.85 kg

DRUGS (1)
  1. PARAGARD 380A [Suspect]
     Indication: CONTRACEPTION
     Route: 015
     Dates: start: 20140127, end: 20140211

REACTIONS (1)
  - Device expulsion [Recovered/Resolved]
